FAERS Safety Report 11176625 (Version 1)
Quarter: 2015Q2

REPORT INFORMATION
  Report Type: Spontaneous
  Country: US (occurrence: None)
  Receive Date: 20150608
  Receipt Date: 20150608
  Transmission Date: 20150821
  Serious: No
  Sender: FDA-Public Use
  Company Number: 2015UCU075000134

PATIENT
  Age: 56 Year
  Sex: Female

DRUGS (13)
  1. AZATHIOPRINE. [Suspect]
     Active Substance: AZATHIOPRINE
     Dates: start: 20070406, end: 20070801
  2. PROTONIX [Concomitant]
     Active Substance: PANTOPRAZOLE SODIUM
  3. BACTRIM DS [Suspect]
     Active Substance: SULFAMETHOXAZOLE\TRIMETHOPRIM
     Route: 048
     Dates: start: 20150116, end: 20150129
  4. PREDNISONE. [Concomitant]
     Active Substance: PREDNISONE
  5. ACETAMINOPHEN. [Concomitant]
     Active Substance: ACETAMINOPHEN
  6. AZELAIC ACID [Concomitant]
     Active Substance: AZELAIC ACID
  7. ERGOCALCIFEROL. [Concomitant]
     Active Substance: ERGOCALCIFEROL
  8. DIFLUCAN [Concomitant]
     Active Substance: FLUCONAZOLE
  9. MULTIVITAMINS WITH IRON/02281201/ [Concomitant]
  10. INFLIXIMAB [Concomitant]
     Active Substance: INFLIXIMAB
  11. CIMZIA [Suspect]
     Active Substance: CERTOLIZUMAB PEGOL
     Indication: CROHN^S DISEASE
     Dates: start: 20090728, end: 20090825
  12. METRONIDAZOLE. [Suspect]
     Active Substance: METRONIDAZOLE
     Dates: start: 20090602, end: 20090628
  13. MESALAMINE. [Concomitant]
     Active Substance: MESALAMINE

REACTIONS (2)
  - Glossodynia [None]
  - Coating in mouth [None]

NARRATIVE: CASE EVENT DATE: 20150316
